FAERS Safety Report 16997583 (Version 1)
Quarter: 2019Q4

REPORT INFORMATION
  Report Type: Spontaneous
  Country: US (occurrence: US)
  Receive Date: 20190924
  Receipt Date: 20190924
  Transmission Date: 20200122
  Serious: No
  Sender: FDA-Public Use
  Company Number: None

PATIENT
  Age: 72 Year
  Sex: Male

DRUGS (1)
  1. ONDANSETRON [Suspect]
     Active Substance: ONDANSETRON
     Indication: CHEMOTHERAPY
     Route: 042
     Dates: start: 20190507, end: 20190507

REACTIONS (21)
  - Blood glucose increased [None]
  - Chills [None]
  - Cough [None]
  - Hypertension [None]
  - Angina pectoris [None]
  - Chest pain [None]
  - Peripheral swelling [None]
  - Abdominal pain [None]
  - Palpitations [None]
  - Pyrexia [None]
  - Dyspnoea [None]
  - Dizziness [None]
  - Sinus tachycardia [None]
  - Headache [None]
  - Asthenia [None]
  - Heart rate irregular [None]
  - Blood pressure systolic increased [None]
  - Vision blurred [None]
  - Productive cough [None]
  - Cardio-respiratory arrest [None]
  - Pharyngeal swelling [None]

NARRATIVE: CASE EVENT DATE: 20190507
